FAERS Safety Report 18064915 (Version 1)
Quarter: 2020Q3

REPORT INFORMATION
  Report Type: Spontaneous
  Country: US (occurrence: US)
  Receive Date: 20200724
  Receipt Date: 20200724
  Transmission Date: 20201103
  Serious: No
  Sender: FDA-Public Use
  Company Number: US-BAYER-2020-150077

PATIENT
  Sex: Male

DRUGS (1)
  1. MIRALAX [Suspect]
     Active Substance: POLYETHYLENE GLYCOL 3350
     Indication: GASTROINTESTINAL DISORDER
     Dosage: HALF OF THE PACKET
     Route: 048
     Dates: start: 20200720

REACTIONS (5)
  - Faeces hard [Unknown]
  - Constipation [Unknown]
  - Prescribed underdose [Unknown]
  - Gastrointestinal motility disorder [Unknown]
  - Incorrect dose administered [Unknown]
